FAERS Safety Report 10220766 (Version 1)
Quarter: 2014Q2

REPORT INFORMATION
  Report Type: Spontaneous
  Country: US (occurrence: US)
  Receive Date: 20140606
  Receipt Date: 20140606
  Transmission Date: 20141212
  Serious: No
  Sender: FDA-Public Use
  Company Number: US-PFIZER INC-2014155355

PATIENT
  Age: 52 Year
  Sex: Female
  Weight: 65.76 kg

DRUGS (4)
  1. LYRICA [Suspect]
     Indication: FIBROMYALGIA
     Dosage: 75 MG, 2X/DAY
     Route: 048
  2. ZOLOFT [Concomitant]
     Dosage: UNK
  3. AMITRIPTYLINE [Concomitant]
     Dosage: UNK
  4. IMITREX [Concomitant]
     Dosage: UNK

REACTIONS (3)
  - Hypersensitivity [Unknown]
  - Pruritus [Unknown]
  - Swelling [Unknown]
